FAERS Safety Report 7612020-4 (Version None)
Quarter: 2011Q3

REPORT INFORMATION
  Report Type: 
  Country: None (occurrence: None)
  Receive Date: 20110715
  Receipt Date: 20110714
  Transmission Date: 20111222
  Serious: Yes (Hospitalization)
  Sender: FDA-Public Use
  Company Number: US-CEPHALON-2011003733

PATIENT
  Sex: Male

DRUGS (1)
  1. TREANDA [Suspect]
     Indication: LYMPHOMA
     Route: 042

REACTIONS (1)
  - SEPTIC PHLEBITIS [None]
